FAERS Safety Report 12844914 (Version 2)
Quarter: 2016Q4

REPORT INFORMATION
  Report Type: Spontaneous
  Country: FR (occurrence: FR)
  Receive Date: 20161013
  Receipt Date: 20161018
  Transmission Date: 20170207
  Serious: Yes (Life-Threatening, Hospitalization)
  Sender: FDA-Public Use
  Company Number: FR-DSJP-DSE-2016-134145

PATIENT

DRUGS (4)
  1. SEVIKAR [Suspect]
     Active Substance: AMLODIPINE BESYLATE\OLMESARTAN MEDOXOMIL
     Dosage: 1 DF, QD
     Route: 048
     Dates: start: 20150925, end: 20151004
  2. SEVIKAR [Suspect]
     Active Substance: AMLODIPINE BESYLATE\OLMESARTAN MEDOXOMIL
     Indication: HYPERTENSION
     Dosage: 1 DF, QD
     Route: 048
     Dates: end: 201509
  3. SEVIKAR [Suspect]
     Active Substance: AMLODIPINE BESYLATE\OLMESARTAN MEDOXOMIL
     Dosage: 1 DF, QD
     Route: 048
     Dates: start: 201509, end: 20150919
  4. VASTEN                             /00880402/ [Concomitant]
     Active Substance: PRAVASTATIN SODIUM
     Indication: DYSLIPIDAEMIA
     Dosage: 20 MG, QD
     Route: 048

REACTIONS (4)
  - Asthenia [Recovered/Resolved]
  - Colitis [Unknown]
  - Weight decreased [Recovered/Resolved]
  - Diarrhoea [Recovered/Resolved]

NARRATIVE: CASE EVENT DATE: 201509
